FAERS Safety Report 5323700-8 (Version None)
Quarter: 2007Q2

REPORT INFORMATION
  Report Type: 
  Country: None (occurrence: None)
  Receive Date: 20070510
  Receipt Date: 20070510
  Transmission Date: 20071010
  Serious: Yes (Hospitalization)
  Sender: FDA-Public Use
  Company Number: None

PATIENT
  Age: 80 Year
  Sex: Female
  Weight: 49.8957 kg

DRUGS (1)
  1. ZYPREXA [Suspect]
     Dosage: ONCE A DAY

REACTIONS (3)
  - GAIT DISTURBANCE [None]
  - HYPERSOMNIA [None]
  - INFLUENZA LIKE ILLNESS [None]
